FAERS Safety Report 10242348 (Version 1)
Quarter: 2014Q2

REPORT INFORMATION
  Report Type: Spontaneous
  Country: US (occurrence: US)
  Receive Date: 20140617
  Receipt Date: 20140617
  Transmission Date: 20141212
  Serious: No
  Sender: FDA-Public Use
  Company Number: US-BAYER-2014-091107

PATIENT
  Age: 53 Year
  Sex: Female
  Weight: 58.05 kg

DRUGS (4)
  1. CLIMARA [Suspect]
     Indication: MENOPAUSE
     Dosage: 0.075 MG/DAY
     Dates: start: 20140519
  2. LEVOTHYROXINE [Concomitant]
     Indication: HYPOTHYROIDISM
     Dosage: 50MG/DAY
     Dates: start: 2013
  3. EFFEXOR [Concomitant]
     Indication: HOT FLUSH
     Dosage: 37.5 MG/DAY
     Dates: start: 2012
  4. ONE-A-DAY [MINERALS NOS,VITAMINS NOS] [Concomitant]

REACTIONS (3)
  - Product adhesion issue [None]
  - Drug ineffective [Not Recovered/Not Resolved]
  - Serum ferritin increased [None]
